FAERS Safety Report 18980351 (Version 1)
Quarter: 2021Q1

REPORT INFORMATION
  Report Type: Spontaneous
  Country: US (occurrence: US)
  Receive Date: 20210306
  Receipt Date: 20210306
  Transmission Date: 20210420
  Serious: Yes (Life-Threatening, Hospitalization)
  Sender: FDA-Public Use
  Company Number: None

PATIENT
  Age: 73 Year
  Sex: Male
  Weight: 120.4 kg

DRUGS (5)
  1. ASPIRIN 81 MG [Concomitant]
     Active Substance: ASPIRIN
     Dates: start: 20210201
  2. CLOPIDOGREL [Concomitant]
     Active Substance: CLOPIDOGREL BISULFATE
     Dates: start: 20210201
  3. METOPROLOL 50MG XR [Concomitant]
     Dates: start: 20210201
  4. ALTEPLASE. [Suspect]
     Active Substance: ALTEPLASE
     Indication: ISCHAEMIC STROKE
     Route: 042
     Dates: start: 20210302, end: 20210302
  5. ATORVASTATIN 40 MG [Concomitant]
     Active Substance: ATORVASTATIN
     Dates: start: 20210201

REACTIONS (9)
  - Dysarthria [None]
  - Subarachnoid haemorrhage [None]
  - Cerebral haematoma [None]
  - Haemorrhagic transformation stroke [None]
  - Aphasia [None]
  - Cranial nerve decompression [None]
  - Confusional state [None]
  - Intracranial mass [None]
  - Anxiety [None]

NARRATIVE: CASE EVENT DATE: 20210302
